FAERS Safety Report 5801221-3 (Version None)
Quarter: 2008Q3

REPORT INFORMATION
  Report Type: 
  Country: None (occurrence: None)
  Receive Date: 20080707
  Receipt Date: 20080630
  Transmission Date: 20090109
  Serious: Yes (Other)
  Sender: FDA-Public Use
  Company Number: FR-ELI_LILLY_AND_COMPANY-FR200806006554

PATIENT
  Age: 16 Year
  Sex: Female
  Weight: 40 kg

DRUGS (3)
  1. ZYPREXA [Suspect]
     Indication: DEPRESSION
     Dosage: 2.5 MG, DAILY (1/D)
     Route: 048
     Dates: start: 20080620
  2. ZOLOFT [Concomitant]
     Indication: DEPRESSION
     Dosage: 25 MG, DAILY (1/D)
     Route: 048
     Dates: start: 20080609, end: 20080620
  3. ZOLOFT [Concomitant]
     Dosage: 50 MG, DAILY (1/D)
     Route: 048
     Dates: start: 20080620

REACTIONS (2)
  - BRADYCARDIA [None]
  - ELECTROCARDIOGRAM QT PROLONGED [None]
